FAERS Safety Report 9511219 (Version 1)
Quarter: 2013Q3

REPORT INFORMATION
  Report Type: Spontaneous
  Country: US (occurrence: None)
  Receive Date: 20130909
  Receipt Date: 20130909
  Transmission Date: 20140515
  Serious: No
  Sender: FDA-Public Use
  Company Number: None

PATIENT
  Age: 72 Year
  Sex: Male
  Weight: 68.95 kg

DRUGS (1)
  1. SYMBICORT [Suspect]
     Indication: CHRONIC OBSTRUCTIVE PULMONARY DISEASE
     Dates: start: 20120304, end: 20120307

REACTIONS (7)
  - Drug intolerance [None]
  - Local swelling [None]
  - Erythema [None]
  - Rectal haemorrhage [None]
  - Weight decreased [None]
  - Abasia [None]
  - Sepsis [None]
